FAERS Safety Report 4700698-4 (Version None)
Quarter: 2005Q2

REPORT INFORMATION
  Report Type: 
  Country: None (occurrence: None)
  Receive Date: 20050627
  Receipt Date: 20050531
  Transmission Date: 20051028
  Serious: Yes (Other)
  Sender: FDA-Public Use
  Company Number: 200514989GDDC

PATIENT
  Age: 30 Year
  Sex: Female

DRUGS (7)
  1. FLAGYL [Suspect]
     Indication: CAESAREAN SECTION
     Route: 042
     Dates: start: 20050523, end: 20050525
  2. VELOSEF CAPSULE [Concomitant]
     Route: 042
     Dates: start: 20050523, end: 20050525
  3. DEXTROSE 5% [Concomitant]
     Route: 042
  4. KINZ [Concomitant]
     Indication: ANALGESIC EFFECT
     Route: 030
  5. VOLTAREL [Concomitant]
     Indication: ANALGESIC EFFECT
     Route: 030
  6. MAGNOPYROL [Concomitant]
     Indication: ANALGESIC EFFECT
     Dosage: DOSE: 2X500
     Route: 042
     Dates: start: 20050524
  7. AVIL [Concomitant]
     Route: 042

REACTIONS (13)
  - BLOOD PRESSURE INCREASED [None]
  - CHILLS [None]
  - CYANOSIS [None]
  - DRUG EXPOSURE DURING PREGNANCY [None]
  - HAEMATOCRIT DECREASED [None]
  - HAEMOGLOBIN DECREASED [None]
  - HEART RATE INCREASED [None]
  - HYPERSENSITIVITY [None]
  - LYMPHOCYTE PERCENTAGE DECREASED [None]
  - MEAN CELL HAEMOGLOBIN DECREASED [None]
  - PERIPHERAL COLDNESS [None]
  - PYREXIA [None]
  - RESPIRATORY RATE INCREASED [None]
